FAERS Safety Report 8183737-0 (Version None)
Quarter: 2012Q1

REPORT INFORMATION
  Report Type: 
  Country: None (occurrence: None)
  Receive Date: 20120305
  Receipt Date: 20120224
  Transmission Date: 20120608
  Serious: Yes (Other)
  Sender: FDA-Public Use
  Company Number: PHHY2012BR016794

PATIENT
  Sex: Female

DRUGS (2)
  1. DIOVAN HCT [Suspect]
     Dosage: 160/12.5 MG
  2. DIOVAN HCT [Suspect]
     Dosage: 0.5 DF,(160/12.5 MG)
     Dates: start: 20120219, end: 20120220

REACTIONS (4)
  - WRONG TECHNIQUE IN DRUG USAGE PROCESS [None]
  - UMBILICAL HERNIA [None]
  - HYPOTENSION [None]
  - FEEDING DISORDER [None]
